FAERS Safety Report 8499249-0 (Version None)
Quarter: 2012Q3

REPORT INFORMATION
  Report Type: 
  Country: None (occurrence: None)
  Receive Date: 20120710
  Receipt Date: 20120705
  Transmission Date: 20120928
  Serious: Yes (Disabling)
  Sender: FDA-Public Use
  Company Number: PHHY2012CO047343

PATIENT
  Sex: Female

DRUGS (4)
  1. CALCIUM [Concomitant]
     Dosage: UNK UKN, UNK
  2. EUTHYROX [Concomitant]
     Dosage: UNK UKN, UNK
  3. ZOLEDRONOC ACID [Suspect]
     Indication: OSTEOPOROSIS
     Dosage: 5MG/100ML /YEAR
     Route: 042
     Dates: start: 20120321
  4. VITAMIN D [Concomitant]
     Dosage: UNK UKN, UNK

REACTIONS (1)
  - VAGINAL PROLAPSE [None]
